FAERS Safety Report 5199654-4 (Version None)
Quarter: 2007Q1

REPORT INFORMATION
  Report Type: 
  Country: None (occurrence: None)
  Receive Date: 20070103
  Receipt Date: 20070103
  Transmission Date: 20070707
  Serious: Yes (Death)
  Sender: FDA-Public Use
  Company Number: None

PATIENT
  Age: 77 Year
  Sex: Male

DRUGS (2)
  1. PLAVIX [Suspect]
     Dosage: 75MG   DAILY  PO
     Route: 048
     Dates: start: 20060626, end: 20060629
  2. COUMADIN [Suspect]
     Dosage: 6.5MG  DAILY  PO
     Route: 048

REACTIONS (7)
  - ABDOMINAL PAIN [None]
  - ASTHENIA [None]
  - BLOOD PRESSURE DECREASED [None]
  - HAEMORRHAGE [None]
  - MULTI-ORGAN FAILURE [None]
  - PROCEDURAL COMPLICATION [None]
  - RETROPERITONEAL HAEMATOMA [None]
